FAERS Safety Report 20850638 (Version 1)
Quarter: 2022Q2

REPORT INFORMATION
  Report Type: Spontaneous
  Country: US (occurrence: US)
  Receive Date: 20220519
  Receipt Date: 20220519
  Transmission Date: 20220721
  Serious: No
  Sender: FDA-Public Use
  Company Number: US-PFIZER INC-202200083305

PATIENT
  Age: 66 Year
  Sex: Female

DRUGS (13)
  1. GABAPENTIN [Suspect]
     Active Substance: GABAPENTIN
     Dosage: UNK
  2. CELEBREX [Suspect]
     Active Substance: CELECOXIB
     Dosage: UNK
  3. ERYTHROMYCIN [Suspect]
     Active Substance: ERYTHROMYCIN
     Dosage: UNK
  4. OXYCODONE [Suspect]
     Active Substance: OXYCODONE
     Dosage: UNK
  5. OMEPRAZOLE [Suspect]
     Active Substance: OMEPRAZOLE
     Dosage: UNK
  6. AMITRIPTYLINE [Suspect]
     Active Substance: AMITRIPTYLINE
     Dosage: UNK
  7. ASPIRIN [Suspect]
     Active Substance: ASPIRIN
     Dosage: UNK
  8. CECLOR [Suspect]
     Active Substance: CEFACLOR
     Dosage: UNK
  9. IODINE [Suspect]
     Active Substance: IODINE
     Dosage: UNK
  10. KEFLEX [Suspect]
     Active Substance: CEPHALEXIN
     Dosage: UNK
  11. CAFFEINE [Suspect]
     Active Substance: CAFFEINE
     Dosage: UNK
  12. CEFACLOR [Suspect]
     Active Substance: CEFACLOR
     Dosage: UNK
  13. LACTOSE [Suspect]
     Active Substance: LACTOSE
     Dosage: UNK

REACTIONS (4)
  - Drug hypersensitivity [Unknown]
  - Nausea [Unknown]
  - Vomiting [Unknown]
  - Abdominal pain [Unknown]
